FAERS Safety Report 10044631 (Version 4)
Quarter: 2015Q1

REPORT INFORMATION
  Report Type: Spontaneous
  Country: GB (occurrence: GB)
  Receive Date: 20140328
  Receipt Date: 20140328
  Transmission Date: 20150720
  Serious: Yes (Death)
  Sender: FDA-Public Use
  Company Number: GB-MYLANLABS-2014S1006432

PATIENT
  Age: 32 Year
  Sex: Male
  Weight: 82.8 kg

DRUGS (4)
  1. MIRTAZAPINE. [Suspect]
     Active Substance: MIRTAZAPINE
  2. ZAPONEX [Suspect]
     Active Substance: CLOZAPINE
     Indication: SCHIZOPHRENIA
     Route: 048
     Dates: start: 20130905, end: 20131001
  3. DIAZEPAM. [Suspect]
     Active Substance: DIAZEPAM
  4. DIAMORPHINE [Suspect]
     Active Substance: DIACETYLMORPHINE

REACTIONS (13)
  - Circulatory collapse [Not Recovered/Not Resolved]
  - Fatty liver alcoholic [Not Recovered/Not Resolved]
  - Bronchoalveolar lavage abnormal [Not Recovered/Not Resolved]
  - Arteriosclerosis coronary artery [Not Recovered/Not Resolved]
  - Aortic arteriosclerosis [Not Recovered/Not Resolved]
  - Renal venous congestion [Not Recovered/Not Resolved]
  - Drug interaction [Not Recovered/Not Resolved]
  - White blood cell count increased [Recovered/Resolved]
  - Toxicity to various agents [Fatal]
  - Pulmonary oedema [Not Recovered/Not Resolved]
  - Antipsychotic drug level increased [Not Recovered/Not Resolved]
  - Pancreatic disorder [Not Recovered/Not Resolved]
  - Neutrophil count increased [Recovered/Resolved]

NARRATIVE: CASE EVENT DATE: 20130918
